FAERS Safety Report 14291130 (Version 2)
Quarter: 2017Q4

REPORT INFORMATION
  Report Type: Spontaneous
  Country: US (occurrence: US)
  Receive Date: 20171215
  Receipt Date: 20171221
  Transmission Date: 20180321
  Serious: Yes (Death)
  Sender: FDA-Public Use
  Company Number: US-CELGENEUS-USA-20171204961

PATIENT
  Age: 72 Year
  Sex: Female

DRUGS (8)
  1. REVLIMID [Suspect]
     Active Substance: LENALIDOMIDE
     Indication: PLASMA CELL MYELOMA
     Dosage: 25 MILLIGRAM
     Route: 048
     Dates: start: 201611
  2. NORCO [Concomitant]
     Active Substance: ACETAMINOPHEN\HYDROCODONE BITARTRATE
     Indication: PAIN
     Route: 041
     Dates: start: 20171127, end: 20171204
  3. DILAUDID [Concomitant]
     Active Substance: HYDROMORPHONE HYDROCHLORIDE
     Indication: PAIN
     Route: 041
     Dates: start: 20171127, end: 20171204
  4. LASIX [Concomitant]
     Active Substance: FUROSEMIDE
     Indication: FLUID RETENTION
     Dosage: 160 MILLIGRAM
     Route: 041
     Dates: start: 20171127, end: 20171204
  5. MUCINEX [Concomitant]
     Active Substance: GUAIFENESIN
     Indication: COUGH
  6. MAXIPIME [Concomitant]
     Active Substance: CEFEPIME HYDROCHLORIDE
     Indication: PNEUMONIA
     Route: 041
     Dates: start: 20171127, end: 20171204
  7. MUCINEX [Concomitant]
     Active Substance: GUAIFENESIN
     Indication: UNEVALUABLE EVENT
     Route: 041
     Dates: start: 20171127, end: 20171204
  8. REVLIMID [Suspect]
     Active Substance: LENALIDOMIDE
     Dosage: 25 MILLIGRAM
     Route: 048
     Dates: start: 20170622, end: 20171118

REACTIONS (1)
  - Plasma cell myeloma [Fatal]

NARRATIVE: CASE EVENT DATE: 20171204
